FAERS Safety Report 16383839 (Version 2)
Quarter: 2019Q4

REPORT INFORMATION
  Report Type: Not Available
  Country: US (occurrence: US)
  Receive Date: 20190603
  Receipt Date: 20191212
  Transmission Date: 20200122
  Serious: Yes (Hospitalization, Other)
  Sender: FDA-Public Use
  Company Number: US-SERVIER-S19005620

PATIENT

DRUGS (7)
  1. TN UNSPECIFIED [Concomitant]
     Indication: B-CELL TYPE ACUTE LEUKAEMIA
     Dosage: 20 MG, EVERY 1 WEEK
     Route: 042
  2. TN UNSPECIFIED [Concomitant]
     Indication: B-CELL TYPE ACUTE LEUKAEMIA
     Dosage: 70 MG SINGLE DOSE
     Route: 037
  3. CASPOFUNGIN [Concomitant]
     Active Substance: CASPOFUNGIN
     Indication: PROPHYLAXIS
     Dosage: UNK
     Route: 065
  4. CIPROFLOXACIN. [Concomitant]
     Active Substance: CIPROFLOXACIN
     Indication: PROPHYLAXIS
     Dosage: UNK
     Route: 065
  5. ONCASPAR [Suspect]
     Active Substance: PEGASPARGASE
     Indication: B-CELL TYPE ACUTE LEUKAEMIA
     Dosage: 2500 IU/M2, SINGLE DOSE
     Route: 042
  6. TN UNSPECIFIED [Concomitant]
     Indication: B-CELL TYPE ACUTE LEUKAEMIA
     Dosage: 60 MG/M2 DAILY
     Route: 042
  7. ACYCLOVIR. [Concomitant]
     Active Substance: ACYCLOVIR
     Indication: PROPHYLAXIS

REACTIONS (3)
  - Biliary tract disorder [Recovered/Resolved]
  - Drug-induced liver injury [Recovered/Resolved]
  - Hepatic steatosis [Recovered/Resolved]

NARRATIVE: CASE EVENT DATE: 2019
